FAERS Safety Report 10269549 (Version 1)
Quarter: 2014Q3

REPORT INFORMATION
  Report Type: Spontaneous
  Country: US (occurrence: US)
  Receive Date: 20140701
  Receipt Date: 20140701
  Transmission Date: 20150326
  Serious: Yes (Hospitalization)
  Sender: FDA-Public Use
  Company Number: US-BRISTOL-MYERS SQUIBB COMPANY-21056874

PATIENT
  Age: 54 Year
  Sex: Female
  Weight: 68.03 kg

DRUGS (1)
  1. ABILIFY [Suspect]
     Active Substance: ARIPIPRAZOLE
     Indication: DEPRESSION
     Dosage: 1 DF=1/2 TAB DAILY

REACTIONS (7)
  - Depression [Unknown]
  - Uterine disorder [Unknown]
  - Malaise [Unknown]
  - Lethargy [Unknown]
  - Wrong technique in drug usage process [Unknown]
  - Dizziness [Unknown]
  - Fatigue [Unknown]

NARRATIVE: CASE EVENT DATE: 2005
